FAERS Safety Report 13157122 (Version 1)
Quarter: 2017Q1

REPORT INFORMATION
  Report Type: Spontaneous
  Country: GB (occurrence: GB)
  Receive Date: 20170127
  Receipt Date: 20170127
  Transmission Date: 20170428
  Serious: Yes (Hospitalization, Other)
  Sender: FDA-Public Use
  Company Number: GB-CIPLA LTD.-2017GB01166

PATIENT

DRUGS (3)
  1. MONTELUKAST [Suspect]
     Active Substance: MONTELUKAST SODIUM
     Dosage: 5 MG, UNK
     Route: 065
  2. SERETIDE [Suspect]
     Active Substance: FLUTICASONE PROPIONATE\SALMETEROL XINAFOATE
     Dosage: 2 PUFFS OF 125, BID
     Route: 065
  3. CETIRIZINE [Suspect]
     Active Substance: CETIRIZINE HYDROCHLORIDE
     Indication: ASTHMA
     Dosage: 5 ML, BID (10 ML DAILY)
     Route: 065

REACTIONS (6)
  - Aggression [Unknown]
  - Asthma [Unknown]
  - Pharyngitis [Unknown]
  - Insomnia [Unknown]
  - Oropharyngeal pain [Unknown]
  - Somnambulism [Unknown]
